FAERS Safety Report 18477105 (Version 2)
Quarter: 2020Q4

REPORT INFORMATION
  Report Type: Spontaneous
  Country: US (occurrence: US)
  Receive Date: 20201107
  Receipt Date: 20201130
  Transmission Date: 20210114
  Serious: Yes (Life-Threatening, Hospitalization)
  Sender: FDA-Public Use
  Company Number: US-TEVA-2020-US-1843873

PATIENT
  Age: 83 Year
  Sex: Female

DRUGS (11)
  1. LEVETIRACETAM. [Suspect]
     Active Substance: LEVETIRACETAM
     Dosage: 3000 MILLIGRAM DAILY; DOSE: 44 MG/KG/D
     Route: 048
  2. PRAMIPEXOLE. [Concomitant]
     Active Substance: PRAMIPEXOLE
     Indication: PARKINSON^S DISEASE
     Dosage: 4.5 MILLIGRAM DAILY; 3 TIMES DAILY
     Route: 048
  3. AMANTADINE. [Concomitant]
     Active Substance: AMANTADINE HYDROCHLORIDE
     Indication: PARKINSON^S DISEASE
     Dosage: 100 MILLIGRAM DAILY;
     Route: 048
  4. TOPIRAMATE. [Suspect]
     Active Substance: TOPIRAMATE
     Indication: EPILEPSY
     Dosage: 200 MILLIGRAM DAILY; DOSE: 2.95 MG/KG/D
     Route: 065
  5. LEVODOPA/CARBIDOPA [Suspect]
     Active Substance: CARBIDOPA\LEVODOPA
     Indication: PARKINSON^S DISEASE
     Dosage: 14 DOSAGE FORMS DAILY; IMMEDIATE RELEASE TABLET 7 TIMES PER DAY
     Route: 048
  6. LORAZEPAM. [Suspect]
     Active Substance: LORAZEPAM
     Indication: EPILEPSY
     Dosage: .5 MILLIGRAM DAILY;
     Route: 065
  7. PHENYTOIN. [Suspect]
     Active Substance: PHENYTOIN
     Indication: EPILEPSY
     Dosage: 300 MILLIGRAM DAILY; DOSE: 4.42 MG/KG/D
     Route: 065
  8. LORAZEPAM. [Suspect]
     Active Substance: LORAZEPAM
     Indication: EPILEPSY
     Dosage: TOTAL THREE DOSES ADMINISTERED
     Route: 042
  9. LEVETIRACETAM. [Suspect]
     Active Substance: LEVETIRACETAM
     Indication: EPILEPSY
     Dosage: 2000 MILLIGRAM DAILY; DOSE: 29.45 MG/KG/D
     Route: 048
  10. LEVODOPA/CARBIDOPA [Suspect]
     Active Substance: CARBIDOPA\LEVODOPA
     Indication: PARKINSON^S DISEASE
     Dosage: 7 DOSAGE FORMS DAILY; CONTROLLED RELEASE TABLET 7 TIMES PER DAY
     Route: 048
  11. LEVETIRACETAM. [Suspect]
     Active Substance: LEVETIRACETAM
     Indication: EPILEPSY
     Dosage: LOADING DOSE
     Route: 042

REACTIONS (2)
  - Drug ineffective [Unknown]
  - Vitamin B6 deficiency [Recovering/Resolving]
